FAERS Safety Report 19993890 (Version 1)
Quarter: 2021Q4

REPORT INFORMATION
  Report Type: Spontaneous
  Country: GB (occurrence: GB)
  Receive Date: 20211025
  Receipt Date: 20211025
  Transmission Date: 20220303
  Serious: Yes (Other)
  Sender: FDA-Public Use
  Company Number: GB-NORGINE LIMITED-NOR202103565

PATIENT
  Sex: Female

DRUGS (1)
  1. PLENVU [Suspect]
     Active Substance: ASCORBIC ACID\POLYETHYLENE GLYCOL 3350\POTASSIUM CHLORIDE\SODIUM ASCORBATE\SODIUM CHLORIDE\SODIUM SU
     Indication: Bowel preparation
     Route: 065

REACTIONS (12)
  - Haemorrhage [Unknown]
  - Malaise [Unknown]
  - Weight decreased [Unknown]
  - Swelling [Unknown]
  - Dizziness [Unknown]
  - Rash [Unknown]
  - Hypersensitivity [Unknown]
  - Headache [Unknown]
  - Dehydration [Unknown]
  - Pain [Unknown]
  - Incorrect dose administered [Unknown]
  - Exposure during pregnancy [Unknown]
